FAERS Safety Report 6086735-6 (Version None)
Quarter: 2009Q1

REPORT INFORMATION
  Report Type: 
  Country: None (occurrence: None)
  Receive Date: 20090223
  Receipt Date: 20090210
  Transmission Date: 20090719
  Serious: Yes (Death, Other)
  Sender: FDA-Public Use
  Company Number: US-PFIZER INC-2009170970

PATIENT
  Sex: Male
  Weight: 145.13 kg

DRUGS (2)
  1. NEURONTIN [Suspect]
  2. LYRICA [Suspect]
     Indication: NERVE INJURY
     Dosage: FREQUENCY: EVERY DAY
     Route: 048

REACTIONS (3)
  - DEATH [None]
  - HIP ARTHROPLASTY [None]
  - PULMONARY OEDEMA [None]
